FAERS Safety Report 22841499 (Version 2)
Quarter: 2024Q3

REPORT INFORMATION
  Report Type: Spontaneous
  Country: JP (occurrence: None)
  Receive Date: 20230821
  Receipt Date: 20240717
  Transmission Date: 20241016
  Serious: Yes (Hospitalization)
  Sender: ENCUBE ETHICALS
  Company Number: JP-Encube-000450

PATIENT
  Age: 62 Year
  Sex: Female

DRUGS (2)
  1. METRONIDAZOLE [Suspect]
     Active Substance: METRONIDAZOLE
     Indication: Liver abscess
     Dosage: 1500 MG PER DAY, TOTAL 46.5G
  2. CEFTRIAXONE [Concomitant]
     Active Substance: CEFTRIAXONE\CEFTRIAXONE SODIUM
     Indication: Liver abscess

REACTIONS (2)
  - Off label use [Unknown]
  - Toxic encephalopathy [Recovered/Resolved]
